FAERS Safety Report 8506800-0 (Version None)
Quarter: 2012Q3

REPORT INFORMATION
  Report Type: 
  Country: None (occurrence: None)
  Receive Date: 20120712
  Receipt Date: 20120706
  Transmission Date: 20120928
  Serious: Yes (Other)
  Sender: FDA-Public Use
  Company Number: US-BAYER-2011-122486

PATIENT
  Age: 23 Year
  Sex: Female
  Weight: 69.841 kg

DRUGS (18)
  1. NSAID'S [Concomitant]
     Dosage: UNK UNK, PRN
     Route: 048
  2. ATIVAN [Concomitant]
  3. YASMIN [Suspect]
     Indication: ACNE
  4. YASMIN [Suspect]
     Indication: POLYCYSTIC OVARIES
  5. MAXALT [Concomitant]
     Indication: MIGRAINE
     Dosage: UNK
     Route: 048
     Dates: start: 19980101
  6. AMOXICILLIN [Concomitant]
     Dosage: 500 MG, TID
     Route: 048
  7. YAZ [Suspect]
     Indication: PREMENSTRUAL SYNDROME
  8. YAZ [Suspect]
     Indication: POLYCYSTIC OVARIES
  9. DROSPIRENONE AND ETHINYL ESTRADIOL [Suspect]
     Indication: POLYCYSTIC OVARIES
  10. NEXIUM [Concomitant]
     Dosage: 40 MG, DAILY
     Route: 048
  11. FLONASE [Concomitant]
     Route: 045
  12. YASMIN [Suspect]
     Indication: PREMENSTRUAL SYNDROME
  13. DROSPIRENONE AND ETHINYL ESTRADIOL [Suspect]
     Indication: ACNE
  14. PROVENTIL [Concomitant]
     Dosage: UNK
     Route: 048
     Dates: start: 19960101
  15. YAZ [Suspect]
     Indication: ACNE
  16. METFORMIN HCL [Concomitant]
     Indication: POLYCYSTIC OVARIES
     Dosage: 500 MG, BID
     Route: 048
     Dates: start: 20010101, end: 20100101
  17. DROSPIRENONE AND ETHINYL ESTRADIOL [Suspect]
     Indication: PREMENSTRUAL SYNDROME
  18. ADVAIR DISKUS 100/50 [Concomitant]
     Dosage: UNK
     Dates: start: 20030101, end: 20100101

REACTIONS (10)
  - PAIN [None]
  - ABDOMINAL PAIN [None]
  - FEAR OF NEEDLES [None]
  - CHOLECYSTITIS CHRONIC [None]
  - INJURY [None]
  - ANHEDONIA [None]
  - ANXIETY [None]
  - GALLBLADDER DISORDER [None]
  - GENERAL PHYSICAL HEALTH DETERIORATION [None]
  - EMOTIONAL DISTRESS [None]
